FAERS Safety Report 5270257-6 (Version None)
Quarter: 2007Q1

REPORT INFORMATION
  Report Type: 
  Country: None (occurrence: None)
  Receive Date: 20070320
  Receipt Date: 20070312
  Transmission Date: 20070707
  Serious: Yes (Other)
  Sender: FDA-Public Use
  Company Number: US-ELI_LILLY_AND_COMPANY-US200703002337

PATIENT
  Age: 37 Year
  Sex: Female

DRUGS (4)
  1. HUMALOG [Suspect]
     Indication: DIABETES MELLITUS
     Dosage: UNK, UNKNOWN
     Route: 058
     Dates: start: 19920101
  2. DIOVAN [Concomitant]
     Dosage: UNK, UNKNOWN
  3. LASIX [Concomitant]
     Dosage: UNK, UNKNOWN
  4. LOVASTATIN [Concomitant]
     Dosage: UNK, UNKNOWN

REACTIONS (3)
  - BLOOD GLUCOSE INCREASED [None]
  - RENAL TRANSPLANT [None]
  - TRANSPLANT FAILURE [None]
